FAERS Safety Report 6146808-6 (Version None)
Quarter: 2009Q2

REPORT INFORMATION
  Report Type: 
  Country: None (occurrence: None)
  Receive Date: 20090401
  Receipt Date: 20090401
  Transmission Date: 20091009
  Serious: Yes (Hospitalization, Other)
  Sender: FDA-Public Use
  Company Number: None

PATIENT
  Age: 73 Year
  Sex: Male
  Weight: 54 kg

DRUGS (8)
  1. GEMCITABINE [Suspect]
     Indication: PANCREATIC CARCINOMA METASTATIC
     Dosage: 1000 MG/M**2 QW IV
     Route: 042
     Dates: start: 20080919, end: 20080919
  2. PLACEBO SOLUTION FOR INFUSION [Suspect]
     Indication: PANCREATIC CARCINOMA METASTATIC
     Dosage: 4 MG/MG Q2W IV
     Route: 042
     Dates: start: 20080919, end: 20080919
  3. OXYCODONE HCL [Concomitant]
  4. FENTANYL [Concomitant]
  5. CREON [Concomitant]
  6. NEXIUM [Concomitant]
  7. ZOFRAN [Concomitant]
  8. REGLAN [Concomitant]

REACTIONS (2)
  - ABDOMINAL ABSCESS [None]
  - PLEURAL EFFUSION [None]
